FAERS Safety Report 9792104 (Version 1)
Quarter: 2014Q1

REPORT INFORMATION
  Report Type: Spontaneous
  Country: IN (occurrence: IN)
  Receive Date: 20140102
  Receipt Date: 20140102
  Transmission Date: 20141002
  Serious: Yes (Other)
  Sender: FDA-Public Use
  Company Number: IN-SA-2013SA135482

PATIENT
  Age: 55 Year
  Sex: Male

DRUGS (6)
  1. LEFLUNOMIDE [Suspect]
     Indication: RHEUMATOID ARTHRITIS
     Route: 065
  2. DICLOFENAC [Suspect]
     Indication: ARTHRITIS
     Route: 048
  3. METHOTREXATE [Suspect]
     Indication: RHEUMATOID ARTHRITIS
     Route: 065
  4. ALLOPURINOL [Concomitant]
     Indication: BLOOD URIC ACID INCREASED
  5. SULFASALAZINE [Concomitant]
     Indication: POLYARTHRITIS
  6. MINOCYCLINE [Concomitant]
     Indication: POLYARTHRITIS

REACTIONS (4)
  - Lepromatous leprosy [Recovering/Resolving]
  - Urticaria [Recovering/Resolving]
  - Rash erythematous [Recovering/Resolving]
  - Aphthous stomatitis [Unknown]
